FAERS Safety Report 9648545 (Version 2)
Quarter: 2013Q4

REPORT INFORMATION
  Report Type: Spontaneous
  Country: US (occurrence: US)
  Receive Date: 20131028
  Receipt Date: 20131028
  Transmission Date: 20140711
  Serious: Yes (Disabling, Other)
  Sender: FDA-Public Use
  Company Number: US-009507513-1108USA00976

PATIENT
  Sex: Female
  Weight: 54.43 kg

DRUGS (12)
  1. FOSAMAX [Suspect]
     Indication: OSTEOPOROSIS
     Dosage: 70 MG, QW
     Route: 048
     Dates: start: 200709, end: 20100622
  2. SYNTHROID [Concomitant]
     Dosage: 0.088 MG, QOD
     Dates: start: 1996
  3. SYNTHROID [Concomitant]
     Dosage: 0.1 MG, QOD
     Dates: start: 1996
  4. PROTONIX [Concomitant]
     Dosage: 40 MG, QD
     Dates: start: 20050331
  5. RISEDRONATE SODIUM [Suspect]
     Dosage: UNK UNK, QW
     Route: 048
     Dates: end: 20100622
  6. ACTONEL [Suspect]
     Indication: OSTEOPOROSIS
     Dosage: 35 MG, QW
     Route: 048
     Dates: start: 200311, end: 200709
  7. MK-0130 [Concomitant]
     Indication: BACK PAIN
     Dosage: 10 MG, TID
     Route: 048
     Dates: start: 20010312
  8. CELEBREX [Concomitant]
     Indication: BACK PAIN
     Dosage: 200 MG, QD
     Dates: start: 20010312
  9. FEXOFENADINE HYDROCHLORIDE [Concomitant]
     Indication: HYPERSENSITIVITY
     Dosage: 180 MG, QD
     Route: 048
     Dates: start: 20101116
  10. FOSAMAX [Suspect]
     Indication: OSTEOPOROSIS
     Dosage: 70 MG, QW
     Route: 048
     Dates: start: 20080225, end: 20080529
  11. FOSAMAX [Suspect]
     Indication: OSTEOPOROSIS
     Dosage: 70 MG, QW
     Route: 048
     Dates: start: 20080629, end: 20100531
  12. ALENDRONATE SODIUM [Suspect]
     Indication: OSTEOPOROSIS
     Dosage: 70 MG, UNK
     Route: 048
     Dates: start: 200802, end: 201006

REACTIONS (27)
  - Uterine disorder [Unknown]
  - Arthropathy [Unknown]
  - Osteonecrosis of jaw [Recovered/Resolved with Sequelae]
  - Tooth crowding [Unknown]
  - Tooth disorder [Unknown]
  - Dental caries [Unknown]
  - Tooth disorder [Unknown]
  - Injury [Unknown]
  - Bruxism [Unknown]
  - Barrett^s oesophagus [Unknown]
  - Renal cyst [Unknown]
  - Lipoma [Unknown]
  - Folliculitis [Unknown]
  - Electrocardiogram abnormal [Unknown]
  - Vitamin D deficiency [Unknown]
  - Type V hyperlipidaemia [Unknown]
  - Pernicious anaemia [Unknown]
  - Hypercholesterolaemia [Unknown]
  - Dyspnoea [Unknown]
  - Urinary tract infection [Unknown]
  - Tooth disorder [Unknown]
  - Wound dehiscence [Unknown]
  - Tooth discolouration [Unknown]
  - Fistula [Unknown]
  - Gastritis [Unknown]
  - Gastrooesophageal reflux disease [Unknown]
  - Pruritus generalised [Unknown]
